FAERS Safety Report 7368229-0 (Version None)
Quarter: 2011Q1

REPORT INFORMATION
  Report Type: 
  Country: None (occurrence: None)
  Receive Date: 20110323
  Receipt Date: 20110321
  Transmission Date: 20110831
  Serious: Yes (Disabling, Other)
  Sender: FDA-Public Use
  Company Number: US-PFIZER INC-2011027265

PATIENT
  Sex: Male
  Weight: 70.295 kg

DRUGS (12)
  1. FENTANYL [Concomitant]
     Indication: BACK PAIN
     Dosage: UNK
     Route: 062
  2. PLAVIX [Concomitant]
     Indication: ANTIPLATELET THERAPY
     Dosage: 75 MG, 1X/DAY
     Route: 048
  3. SEROQUEL [Concomitant]
     Indication: DEPRESSION
     Dosage: UNK
  4. METOPROLOL TARTRATE [Concomitant]
     Indication: CARDIAC DISORDER
     Dosage: 50 MG, 1X/DAY
     Route: 048
  5. ALTACE [Concomitant]
     Indication: HYPERTENSION
     Dosage: UNK
  6. VALIUM [Concomitant]
     Indication: ANXIETY
     Dosage: 10 MG, 1X/DAY
     Route: 048
  7. OXYCODONE AND ACETAMINOPHEN [Concomitant]
     Indication: BACK PAIN
     Dosage: 7.5/325
     Route: 048
  8. SIMVASTATIN [Concomitant]
     Dosage: UNK
  9. TERAZOSIN [Concomitant]
     Dosage: UNK
  10. CHANTIX [Suspect]
     Indication: SMOKING CESSATION THERAPY
     Dosage: 0.5 MG, 1X/DAY
     Route: 048
     Dates: start: 20110202, end: 20110207
  11. RAMIPRIL [Concomitant]
     Indication: HYPERTENSION
     Dosage: 10 MG, 1X/DAY
     Route: 048
  12. ASPIRIN [Concomitant]
     Indication: CARDIAC DISORDER
     Dosage: 81 MG, 1X/DAY
     Route: 048

REACTIONS (6)
  - DEPRESSION [None]
  - AGITATION [None]
  - HOMICIDAL IDEATION [None]
  - NIGHTMARE [None]
  - SUICIDAL IDEATION [None]
  - IRRITABILITY [None]
